FAERS Safety Report 8428962-6 (Version None)
Quarter: 2012Q2

REPORT INFORMATION
  Report Type: 
  Country: None (occurrence: None)
  Receive Date: 20120605
  Receipt Date: 20120523
  Transmission Date: 20120825
  Serious: Yes (Hospitalization, Other)
  Sender: FDA-Public Use
  Company Number: 2012P1031954

PATIENT
  Age: 65 Year
  Sex: Female
  Weight: 74.8435 kg

DRUGS (6)
  1. RIFAMPIN [Suspect]
     Indication: MYCOBACTERIUM AVIUM COMPLEX INFECTION
     Dosage: 600 MG;M, W, F; PO
     Route: 048
     Dates: start: 20120106, end: 20120516
  2. AZITHROMYCIN [Concomitant]
  3. JARRO-DOPHILUS [Concomitant]
  4. ETHAMBUTOL HYDROCHLORIDE [Concomitant]
  5. ALLEGRA [Concomitant]
  6. METHENAMINE TAB [Suspect]
     Indication: URINE ABNORMALITY
     Dates: start: 20120507, end: 20120512

REACTIONS (8)
  - CYSTITIS BACTERIAL [None]
  - ERYTHEMA [None]
  - DRUG HYPERSENSITIVITY [None]
  - HAEMORRHAGE [None]
  - PAIN [None]
  - THROMBOCYTOPENIA [None]
  - ASTHENIA [None]
  - DRUG INTERACTION [None]
